FAERS Safety Report 21479268 (Version 3)
Quarter: 2022Q4

REPORT INFORMATION
  Report Type: Report from Study
  Country: US (occurrence: US)
  Receive Date: 20221019
  Receipt Date: 20221119
  Transmission Date: 20230112
  Serious: Yes (Other)
  Sender: FDA-Public Use
  Company Number: US-002147023-NVSC2022US235608

PATIENT
  Sex: Female

DRUGS (1)
  1. PIQRAY [Suspect]
     Active Substance: ALPELISIB
     Indication: Product used for unknown indication
     Dosage: UNK
     Route: 065
     Dates: end: 20221112

REACTIONS (6)
  - Hepatic neoplasm [Unknown]
  - Oral pain [Unknown]
  - Fatigue [Unknown]
  - Asthenia [Unknown]
  - Rash pruritic [Recovering/Resolving]
  - Rash macular [Recovering/Resolving]
